FAERS Safety Report 6404960-9 (Version None)
Quarter: 2009Q4

REPORT INFORMATION
  Report Type: 
  Country: None (occurrence: None)
  Receive Date: 20091019
  Receipt Date: 20090918
  Transmission Date: 20100525
  Serious: No
  Sender: FDA-Public Use
  Company Number: US-BAYER-200933456NA

PATIENT
  Age: 87 Year
  Sex: Male

DRUGS (2)
  1. CIPRO [Suspect]
     Indication: URINARY TRACT INFECTION
     Dosage: TOTAL DAILY DOSE: 1000 MG
  2. CIPRO [Suspect]
     Dosage: TOTAL DAILY DOSE: 250 MG

REACTIONS (3)
  - ARTHRALGIA [None]
  - FALL [None]
  - VOMITING [None]
